FAERS Safety Report 20683747 (Version 1)
Quarter: 2022Q2

REPORT INFORMATION
  Report Type: Spontaneous
  Country: JP (occurrence: JP)
  Receive Date: 20220407
  Receipt Date: 20220407
  Transmission Date: 20220721
  Serious: Yes (Hospitalization, Other)
  Sender: FDA-Public Use
  Company Number: JP-PFIZER INC-202200488064

PATIENT
  Age: 77 Year
  Sex: Female

DRUGS (3)
  1. METHOTREXATE SODIUM [Suspect]
     Active Substance: METHOTREXATE SODIUM
     Indication: Rheumatoid arthritis
     Dosage: INITIAL DOSE
     Route: 048
  2. CELECOXIB [Suspect]
     Active Substance: CELECOXIB
  3. LANSOPRAZOLE [Suspect]
     Active Substance: LANSOPRAZOLE

REACTIONS (4)
  - Acute kidney injury [Unknown]
  - Pancytopenia [Unknown]
  - Toxicity to various agents [Unknown]
  - Mouth ulceration [Unknown]
